FAERS Safety Report 12851522 (Version 2)
Quarter: 2016Q4

REPORT INFORMATION
  Report Type: Spontaneous
  Country: US (occurrence: US)
  Receive Date: 20161017
  Receipt Date: 20161206
  Transmission Date: 20170207
  Serious: No
  Sender: FDA-Public Use
  Company Number: US-PFIZER INC-2016444797

PATIENT
  Age: 73 Year
  Sex: Female
  Weight: 61 kg

DRUGS (3)
  1. FASLODEX [Concomitant]
     Active Substance: FULVESTRANT
     Dosage: UNK
     Dates: start: 201611
  2. IBRANCE [Suspect]
     Active Substance: PALBOCICLIB
     Indication: NEOPLASM MALIGNANT
     Dosage: 100 MG, DAILY
     Dates: start: 201601, end: 201609
  3. IBRANCE [Suspect]
     Active Substance: PALBOCICLIB
     Indication: BREAST CANCER
     Dosage: 20 MG, UNK
     Dates: start: 201601, end: 201607

REACTIONS (1)
  - Neoplasm recurrence [Not Recovered/Not Resolved]

NARRATIVE: CASE EVENT DATE: 201607
